FAERS Safety Report 6131961-0 (Version None)
Quarter: 2009Q1

REPORT INFORMATION
  Report Type: 
  Country: None (occurrence: None)
  Receive Date: 20090325
  Receipt Date: 20090324
  Transmission Date: 20090719
  Serious: Yes (Hospitalization, Other)
  Sender: FDA-Public Use
  Company Number: US-PFIZER INC-2008101406

PATIENT
  Sex: Male
  Weight: 81.818 kg

DRUGS (3)
  1. VIAGRA [Suspect]
     Dates: start: 20080520, end: 20080522
  2. INSULIN [Concomitant]
  3. ACETYLSALICYLIC ACID [Concomitant]

REACTIONS (5)
  - CEREBRAL HAEMORRHAGE [None]
  - CEREBROVASCULAR ACCIDENT [None]
  - ERYTHEMA [None]
  - HYPERTENSION [None]
  - PARALYSIS [None]
